FAERS Safety Report 9064082 (Version 1)
Quarter: 2013Q1

REPORT INFORMATION
  Report Type: Report from Study
  Country: US (occurrence: US)
  Receive Date: 20130131
  Receipt Date: 20130131
  Transmission Date: 20140127
  Serious: No
  Sender: FDA-Public Use
  Company Number: US-ABBOTT-12P-163-0952823-00

PATIENT
  Age: 30 Year
  Sex: Female

DRUGS (8)
  1. HUMIRA [Suspect]
     Indication: PSORIATIC ARTHROPATHY
     Route: 058
     Dates: start: 20120622, end: 20120913
  2. SYNTHROID [Concomitant]
     Indication: HYPOTHYROIDISM
     Dosage: 50MCG DAILY
  3. TRAMADOL [Concomitant]
     Indication: PAIN
  4. SKELAXIN [Concomitant]
     Indication: PAIN
  5. MELOXICAM [Concomitant]
     Indication: PSORIATIC ARTHROPATHY
  6. MULTIVITAMIN [Concomitant]
     Indication: PRODUCT USED FOR UNKNOWN INDICATION
  7. MINOCYCLINE [Concomitant]
     Indication: PAIN
  8. TYLENOL [Concomitant]
     Indication: PAIN

REACTIONS (34)
  - Dizziness [Recovered/Resolved]
  - Throat irritation [Not Recovered/Not Resolved]
  - Motion sickness [Recovered/Resolved]
  - Feeling abnormal [Recovered/Resolved]
  - Vertigo [Recovered/Resolved]
  - Agitation [Recovered/Resolved]
  - Dizziness [Recovered/Resolved]
  - Sensory disturbance [Recovered/Resolved]
  - Pruritus [Not Recovered/Not Resolved]
  - Urticaria [Not Recovered/Not Resolved]
  - Urticaria [Not Recovered/Not Resolved]
  - Urticaria [Not Recovered/Not Resolved]
  - Urticaria [Not Recovered/Not Resolved]
  - Myalgia [Recovered/Resolved]
  - Myalgia [Recovered/Resolved]
  - Injection site warmth [Recovered/Resolved]
  - Musculoskeletal pain [Recovered/Resolved]
  - Headache [Recovered/Resolved]
  - Injection site pain [Not Recovered/Not Resolved]
  - Rash [Not Recovered/Not Resolved]
  - Rash pruritic [Not Recovered/Not Resolved]
  - Rash macular [Not Recovered/Not Resolved]
  - Headache [Recovered/Resolved]
  - Myalgia [Not Recovered/Not Resolved]
  - Injection site pain [Not Recovered/Not Resolved]
  - Wrong technique in drug usage process [Unknown]
  - Incorrect dose administered [Unknown]
  - Injection site urticaria [Not Recovered/Not Resolved]
  - Injection site pain [Recovered/Resolved]
  - Gait disturbance [Recovered/Resolved]
  - Headache [Not Recovered/Not Resolved]
  - Fatigue [Not Recovered/Not Resolved]
  - Myalgia [Not Recovered/Not Resolved]
  - Urticaria [Recovered/Resolved]
